FAERS Safety Report 20701639 (Version 2)
Quarter: 2022Q2

REPORT INFORMATION
  Report Type: Spontaneous
  Country: GB (occurrence: GB)
  Receive Date: 20220412
  Receipt Date: 20220428
  Transmission Date: 20220721
  Serious: Yes (Other)
  Sender: FDA-Public Use
  Company Number: GB-BAYER-2022A048198

PATIENT
  Age: 62 Year
  Sex: Male

DRUGS (3)
  1. NUBEQA [Suspect]
     Active Substance: DAROLUTAMIDE
     Dosage: 300 MG, BID
  2. NUBEQA [Suspect]
     Active Substance: DAROLUTAMIDE
     Dosage: 900 MG, QD
  3. NUBEQA [Suspect]
     Active Substance: DAROLUTAMIDE
     Dosage: 300 MG, BID

REACTIONS (2)
  - Suicidal ideation [Recovered/Resolved]
  - Off label use [None]

NARRATIVE: CASE EVENT DATE: 20220201
